FAERS Safety Report 6401496-6 (Version None)
Quarter: 2009Q4

REPORT INFORMATION
  Report Type: 
  Country: None (occurrence: None)
  Receive Date: 20091015
  Receipt Date: 20091005
  Transmission Date: 20100525
  Serious: Yes (Other)
  Sender: FDA-Public Use
  Company Number: US-GENENTECH-292166

PATIENT
  Sex: Female

DRUGS (2)
  1. AVASTIN [Suspect]
     Indication: OVARIAN CANCER
     Dosage: 10 MG/KG, Q2W
     Route: 042
  2. ERLOTINIB [Suspect]
     Indication: OVARIAN CANCER
     Dosage: 150 MG, UNK
     Route: 048

REACTIONS (4)
  - ACNE [None]
  - DIARRHOEA [None]
  - RASH [None]
  - SKIN EXFOLIATION [None]
